FAERS Safety Report 6128613-X (Version None)
Quarter: 2009Q1

REPORT INFORMATION
  Report Type: 
  Country: None (occurrence: None)
  Receive Date: 20090323
  Receipt Date: 20090306
  Transmission Date: 20090719
  Serious: Yes (Other)
  Sender: FDA-Public Use
  Company Number: MX-B.I. PHARMACEUTICALS,INC./RIDGEFIELD-2009-MX-00021MX

PATIENT
  Sex: Male

DRUGS (1)
  1. SECOTEX OCAS [Suspect]
     Indication: BENIGN PROSTATIC HYPERPLASIA
     Dosage: .4MG
     Route: 048

REACTIONS (4)
  - FACE INJURY [None]
  - FALL [None]
  - HYPOTENSION [None]
  - VERTIGO [None]
